FAERS Safety Report 6964681-0 (Version None)
Quarter: 2010Q3

REPORT INFORMATION
  Report Type: 
  Country: None (occurrence: None)
  Receive Date: 20100903
  Receipt Date: 20100827
  Transmission Date: 20110219
  Serious: Yes (Other)
  Sender: FDA-Public Use
  Company Number: US-PFIZER INC-2010108602

PATIENT
  Sex: Male
  Weight: 90.703 kg

DRUGS (7)
  1. CELEBREX [Suspect]
     Indication: PAIN IN EXTREMITY
     Dosage: 200 MG, DAILY
     Route: 048
     Dates: start: 20100101
  2. ACETYLSALICYLIC ACID [Concomitant]
     Dosage: 81 MG, UNK
  3. NORVASC [Concomitant]
     Dosage: 5 MG, UNK
  4. ZOCOR [Concomitant]
     Dosage: 40 MG, UNK
  5. OMEPRAZOLE [Concomitant]
     Dosage: UNK
  6. TOPROL-XL [Concomitant]
     Dosage: 25 MG, UNK
  7. FISH OIL [Concomitant]
     Dosage: 2000 MG, UNK

REACTIONS (2)
  - ARTHRITIS [None]
  - ASTHENIA [None]
